FAERS Safety Report 25950663 (Version 2)
Quarter: 2025Q4

REPORT INFORMATION
  Report Type: Spontaneous
  Country: EU (occurrence: EU)
  Receive Date: 20251023
  Receipt Date: 20251114
  Transmission Date: 20260117
  Serious: Yes (Other)
  Sender: JOHNSON AND JOHNSON
  Company Number: None

PATIENT
  Age: 60 Year
  Sex: Female
  Weight: 69 kg

DRUGS (17)
  1. RYBREVANT [Suspect]
     Active Substance: AMIVANTAMAB-VMJW
     Indication: Lung adenocarcinoma
     Dosage: 1400 MG/ 4 FOIS PAR CYCLE. C1 J1, J2, J8, J15
     Dates: start: 20250521, end: 20250604
  2. RYBREVANT [Suspect]
     Active Substance: AMIVANTAMAB-VMJW
     Dosage: 1400 MG/ 4 FOIS PAR CYCLE. C1 J1, J2, J8, J15
     Dates: start: 20250611, end: 20250611
  3. RYBREVANT [Suspect]
     Active Substance: AMIVANTAMAB-VMJW
     Dosage: DAY2 CYCLE 1
     Dates: start: 20250522
  4. RYBREVANT [Suspect]
     Active Substance: AMIVANTAMAB-VMJW
     Dosage: C1J8
     Dates: start: 20250528
  5. RYBREVANT [Suspect]
     Active Substance: AMIVANTAMAB-VMJW
     Dosage: DAY 15
     Dates: start: 20250604
  6. RYBREVANT [Suspect]
     Active Substance: AMIVANTAMAB-VMJW
     Dosage: CYCLE 2
     Dates: start: 20250610
  7. RYBREVANT [Suspect]
     Active Substance: AMIVANTAMAB-VMJW
     Dosage: CYCLE 3
     Dates: start: 20250630
  8. CARBOPLATIN [Concomitant]
     Active Substance: CARBOPLATIN
     Indication: Lung adenocarcinoma
     Dosage: DAY 1
     Dates: start: 20250521
  9. CARBOPLATIN [Concomitant]
     Active Substance: CARBOPLATIN
     Dosage: CYCLE 2
     Dates: start: 20250610
  10. CARBOPLATIN [Concomitant]
     Active Substance: CARBOPLATIN
     Dosage: CYCLE 3
     Dates: start: 20250630
  11. PEMETREXED [Concomitant]
     Active Substance: PEMETREXED
     Indication: Lung adenocarcinoma
     Dosage: DAY 1
     Dates: start: 20250521
  12. PEMETREXED [Concomitant]
     Active Substance: PEMETREXED
     Dosage: CYCLE 2
     Dates: start: 20250610
  13. PEMETREXED [Concomitant]
     Active Substance: PEMETREXED
     Dosage: CYCLE 3
     Dates: start: 20250630
  14. BISOPROLOL [Concomitant]
     Active Substance: BISOPROLOL
     Indication: Product used for unknown indication
  15. VERAPAMIL [Concomitant]
     Active Substance: VERAPAMIL HYDROCHLORIDE
     Indication: Product used for unknown indication
  16. PREDNISONE [Concomitant]
     Active Substance: PREDNISONE
     Indication: Product used for unknown indication
  17. LANSOPRAZOLE [Concomitant]
     Active Substance: LANSOPRAZOLE
     Indication: Product used for unknown indication

REACTIONS (2)
  - Supraventricular tachycardia [Recovered/Resolved]
  - Supraventricular tachycardia [Recovered/Resolved]

NARRATIVE: CASE EVENT DATE: 20250527
